FAERS Safety Report 17288998 (Version 6)
Quarter: 2020Q2

REPORT INFORMATION
  Report Type: Spontaneous
  Country: TR (occurrence: TR)
  Receive Date: 20200120
  Receipt Date: 20200420
  Transmission Date: 20200713
  Serious: Yes (Other)
  Sender: FDA-Public Use
  Company Number: TR-ABBVIE-20K-161-3239615-00

PATIENT
  Age: 42 Year
  Sex: Female

DRUGS (1)
  1. HUMIRA [Suspect]
     Active Substance: ADALIMUMAB
     Indication: CROHN^S DISEASE
     Dosage: 4 TO 5 MONTH AGO (JAN -2020 TO DEC 2019)
     Route: 058
     Dates: end: 201912

REACTIONS (3)
  - Tuberculosis [Not Recovered/Not Resolved]
  - Lung disorder [Unknown]
  - Granulomatous lymphadenitis [Not Recovered/Not Resolved]
